FAERS Safety Report 22970237 (Version 4)
Quarter: 2024Q1

REPORT INFORMATION
  Report Type: Spontaneous
  Country: JP (occurrence: JP)
  Receive Date: 20230922
  Receipt Date: 20240314
  Transmission Date: 20240410
  Serious: Yes (Death, Hospitalization)
  Sender: FDA-Public Use
  Company Number: JP-NBI-BS202300235

PATIENT
  Age: 80 Year
  Sex: Male
  Weight: 42 kg

DRUGS (3)
  1. OFEV [Suspect]
     Active Substance: NINTEDANIB
     Indication: Idiopathic interstitial pneumonia
     Route: 048
     Dates: start: 20220426, end: 20221124
  2. OFEV [Suspect]
     Active Substance: NINTEDANIB
     Route: 048
     Dates: start: 20221125, end: 20221212
  3. OFEV [Suspect]
     Active Substance: NINTEDANIB
     Route: 048
     Dates: start: 20221222, end: 20230526

REACTIONS (5)
  - Pneumothorax [Fatal]
  - Pneumonia [Fatal]
  - Pneumothorax [Recovered/Resolved]
  - Pneumothorax [Recovering/Resolving]
  - Impaired healing [Unknown]

NARRATIVE: CASE EVENT DATE: 20221212
